FAERS Safety Report 14412273 (Version 14)
Quarter: 2018Q3

REPORT INFORMATION
  Report Type: Spontaneous
  Country: FR (occurrence: FR)
  Receive Date: 20180119
  Receipt Date: 20180717
  Transmission Date: 20181010
  Serious: Yes (Death, Life-Threatening, Hospitalization, Other)
  Sender: FDA-Public Use
  Company Number: US-ASTRAZENECA-2018SE06212

PATIENT
  Age: 55 Year
  Sex: Male
  Weight: 96 kg

DRUGS (41)
  1. BAYER ASPIRIN [Suspect]
     Active Substance: ASPIRIN
     Indication: ATRIAL FIBRILLATION
     Route: 065
     Dates: start: 20171128
  2. BAYER ASPIRIN [Suspect]
     Active Substance: ASPIRIN
     Indication: ATRIAL FIBRILLATION
     Dosage: 100.0MG UNKNOWN
     Route: 065
     Dates: start: 20180109
  3. BAYER ASPIRIN [Suspect]
     Active Substance: ASPIRIN
     Indication: ATRIAL FIBRILLATION
     Dosage: 100.0MG UNKNOWN
     Route: 065
  4. ELIQUIS [Suspect]
     Active Substance: APIXABAN
     Indication: PROPHYLAXIS
     Dosage: 5.0MG UNKNOWN
     Route: 065
     Dates: start: 20151104
  5. ELIQUIS [Suspect]
     Active Substance: APIXABAN
     Indication: CARDIOVASCULAR EVENT PROPHYLAXIS
     Dosage: 5.0MG UNKNOWN
     Route: 065
     Dates: start: 20180109
  6. TRULICITY [Concomitant]
     Active Substance: DULAGLUTIDE
     Dates: start: 20160926
  7. NEXIUM [Suspect]
     Active Substance: ESOMEPRAZOLE MAGNESIUM
     Indication: PROPHYLAXIS AGAINST GASTROINTESTINAL ULCER
     Route: 048
     Dates: start: 20180109
  8. NEXIUM [Suspect]
     Active Substance: ESOMEPRAZOLE MAGNESIUM
     Indication: PROPHYLAXIS AGAINST GASTROINTESTINAL ULCER
     Route: 048
     Dates: start: 20180109
  9. BAYER ASPIRIN [Suspect]
     Active Substance: ASPIRIN
     Indication: ATRIAL FIBRILLATION
     Dosage: 100.0MG UNKNOWN
     Route: 065
     Dates: start: 20171129
  10. BAYASPIRIN [Suspect]
     Active Substance: ASPIRIN
     Indication: ATRIAL FIBRILLATION
     Dosage: 100.0MG UNKNOWN
     Route: 065
     Dates: start: 20180109
  11. BAYASPIRIN [Suspect]
     Active Substance: ASPIRIN
     Indication: ATRIAL FIBRILLATION
     Dosage: 100.0MG UNKNOWN
     Route: 065
     Dates: start: 20171129
  12. NEXIUM [Suspect]
     Active Substance: ESOMEPRAZOLE MAGNESIUM
     Indication: PROPHYLAXIS AGAINST GASTROINTESTINAL ULCER
     Route: 048
     Dates: start: 20171129, end: 20180109
  13. BISOPROLOL FUMARATE. [Suspect]
     Active Substance: BISOPROLOL FUMARATE
     Indication: ATRIAL FIBRILLATION
     Route: 065
     Dates: end: 20180109
  14. ELIQUIS [Suspect]
     Active Substance: APIXABAN
     Indication: CEREBROVASCULAR ACCIDENT PROPHYLAXIS
     Dosage: 5.0MG UNKNOWN
     Route: 065
     Dates: start: 20180109
  15. ATELEC [Concomitant]
     Active Substance: CILNIDIPINE
     Indication: PRODUCT USED FOR UNKNOWN INDICATION
     Dosage: UNK
     Route: 065
     Dates: start: 20150406
  16. FEBURIC [Concomitant]
     Active Substance: FEBUXOSTAT
     Indication: PRODUCT USED FOR UNKNOWN INDICATION
     Dosage: UNK
     Route: 065
     Dates: start: 20150406
  17. BAYASPIRIN [Suspect]
     Active Substance: ASPIRIN
     Indication: ATRIAL FIBRILLATION
     Dosage: 100.0MG UNKNOWN
     Route: 065
  18. ASPIRIN PROTECT [Suspect]
     Active Substance: ASPIRIN
     Indication: ATRIAL FIBRILLATION
     Dosage: 100.0MG UNKNOWN
     Route: 065
  19. ELIQUIS [Suspect]
     Active Substance: APIXABAN
     Indication: PROPHYLAXIS
     Dosage: 5.0MG UNKNOWN
     Route: 065
     Dates: start: 20171129, end: 20180109
  20. BISOPROLOL FUMARATE. [Suspect]
     Active Substance: BISOPROLOL FUMARATE
     Indication: ATRIAL FIBRILLATION
     Route: 065
     Dates: start: 20171129
  21. PRAVASTATIN SODIUM. [Concomitant]
     Active Substance: PRAVASTATIN SODIUM
     Indication: PRODUCT USED FOR UNKNOWN INDICATION
     Dosage: UNK
     Route: 065
     Dates: start: 20170529
  22. FEBUXOSTAT. [Concomitant]
     Active Substance: FEBUXOSTAT
  23. BAYASPIRIN [Suspect]
     Active Substance: ASPIRIN
     Indication: ATRIAL FIBRILLATION
     Dosage: 100.0MG UNKNOWN
     Route: 065
     Dates: start: 20151104
  24. BISOPROLOL FUMARATE. [Suspect]
     Active Substance: BISOPROLOL FUMARATE
     Indication: ATRIAL FIBRILLATION
     Route: 065
     Dates: start: 20151104, end: 20180109
  25. ELIQUIS [Suspect]
     Active Substance: APIXABAN
     Indication: CARDIOVASCULAR EVENT PROPHYLAXIS
     Dosage: 5.0MG UNKNOWN
     Route: 065
     Dates: start: 20151104
  26. ELIQUIS [Suspect]
     Active Substance: APIXABAN
     Indication: CEREBROVASCULAR ACCIDENT PROPHYLAXIS
     Dosage: 5.0MG UNKNOWN
     Route: 065
     Dates: start: 20151104
  27. METGLUCO [Concomitant]
     Active Substance: METFORMIN HYDROCHLORIDE
     Indication: PRODUCT USED FOR UNKNOWN INDICATION
     Dosage: UNK
     Route: 065
  28. OLMETEC [Concomitant]
     Active Substance: OLMESARTAN MEDOXOMIL
     Indication: PRODUCT USED FOR UNKNOWN INDICATION
     Dosage: UNK
     Route: 065
     Dates: start: 20150406
  29. NEXIUM [Suspect]
     Active Substance: ESOMEPRAZOLE MAGNESIUM
     Indication: PROPHYLAXIS AGAINST GASTROINTESTINAL ULCER
     Route: 048
     Dates: start: 20171129, end: 20180109
  30. REPATHA [Suspect]
     Active Substance: EVOLOCUMAB
     Indication: HYPERCHOLESTEROLAEMIA
     Route: 058
     Dates: start: 20170529, end: 20171129
  31. APIXABAN [Suspect]
     Active Substance: APIXABAN
     Indication: CEREBROVASCULAR ACCIDENT PROPHYLAXIS
     Route: 065
     Dates: start: 20171129
  32. EPADEL?S [Concomitant]
     Active Substance: ICOSAPENT ETHYL
  33. BAYER ASPIRIN [Suspect]
     Active Substance: ASPIRIN
     Indication: ATRIAL FIBRILLATION
     Route: 065
     Dates: start: 20151104
  34. BAYASPIRIN [Suspect]
     Active Substance: ASPIRIN
     Indication: ATRIAL FIBRILLATION
     Route: 065
     Dates: start: 20171128
  35. BISOPROLOL FUMARATE. [Suspect]
     Active Substance: BISOPROLOL FUMARATE
     Indication: ATRIAL FIBRILLATION
     Route: 065
     Dates: start: 20171129
  36. ELIQUIS [Suspect]
     Active Substance: APIXABAN
     Indication: CARDIOVASCULAR EVENT PROPHYLAXIS
     Dosage: 5.0MG UNKNOWN
     Route: 065
     Dates: start: 20171129, end: 20180109
  37. ELIQUIS [Suspect]
     Active Substance: APIXABAN
     Indication: CEREBROVASCULAR ACCIDENT PROPHYLAXIS
     Dosage: 5.0MG UNKNOWN
     Route: 065
     Dates: start: 20171129, end: 20180109
  38. ELIQUIS [Suspect]
     Active Substance: APIXABAN
     Indication: PROPHYLAXIS
     Dosage: 5.0MG UNKNOWN
     Route: 065
     Dates: start: 20180109
  39. APIXABAN [Suspect]
     Active Substance: APIXABAN
     Indication: PROPHYLAXIS
     Route: 065
     Dates: start: 20171129
  40. SUREPOST [Concomitant]
     Active Substance: REPAGLINIDE
  41. METFORMIN HYDROCHLORIDE. [Concomitant]
     Active Substance: METFORMIN HYDROCHLORIDE

REACTIONS (19)
  - Hypokinesia [Fatal]
  - Akinesia [Fatal]
  - Dyspnoea [Fatal]
  - Loss of consciousness [Fatal]
  - Heart rate increased [Fatal]
  - Musculoskeletal disorder [Fatal]
  - Arrhythmia [Fatal]
  - Respiratory arrest [Fatal]
  - Hyperkinetic heart syndrome [Fatal]
  - Acute coronary syndrome [Fatal]
  - Ventricular hypokinesia [Fatal]
  - Pulmonary congestion [Fatal]
  - Seizure [Fatal]
  - Multiple organ dysfunction syndrome [Fatal]
  - Echocardiogram abnormal [Fatal]
  - Hypoxic-ischaemic encephalopathy [Fatal]
  - Hyperkinesia [Fatal]
  - Stress cardiomyopathy [Fatal]
  - Cardio-respiratory arrest [Fatal]

NARRATIVE: CASE EVENT DATE: 20171129
